FAERS Safety Report 10374780 (Version 2)
Quarter: 2014Q3

REPORT INFORMATION
  Report Type: Spontaneous
  Country: FR (occurrence: FR)
  Receive Date: 20140811
  Receipt Date: 20140916
  Transmission Date: 20150326
  Serious: Yes (Hospitalization)
  Sender: FDA-Public Use
  Company Number: FR-ROCHE-1447404

PATIENT
  Age: 33 Year
  Sex: Male

DRUGS (3)
  1. VALIUM [Suspect]
     Active Substance: DIAZEPAM
     Indication: PAIN
     Route: 048
     Dates: start: 20140511, end: 20140511
  2. LEXOMIL [Suspect]
     Active Substance: BROMAZEPAM
     Indication: PAIN
     Route: 048
     Dates: start: 20140511, end: 20140511
  3. LYRICA [Suspect]
     Active Substance: PREGABALIN
     Indication: PAIN
     Route: 048
     Dates: start: 20140511, end: 20140511

REACTIONS (2)
  - Pneumonia aspiration [Recovered/Resolved]
  - Somnolence [Recovered/Resolved]

NARRATIVE: CASE EVENT DATE: 20140511
